FAERS Safety Report 6409806-0 (Version None)
Quarter: 2009Q4

REPORT INFORMATION
  Report Type: 
  Country: None (occurrence: None)
  Receive Date: 20091021
  Receipt Date: 20091021
  Transmission Date: 20100525
  Serious: No
  Sender: FDA-Public Use
  Company Number: None

PATIENT
  Age: 47 Year
  Sex: Male

DRUGS (1)
  1. CITALOPRAM HYDROBROMIDE [Suspect]
     Dosage: 40 MG EVERY DAY PO
     Route: 048
     Dates: start: 20090818

REACTIONS (2)
  - ABNORMAL BEHAVIOUR [None]
  - CONFUSIONAL STATE [None]
